FAERS Safety Report 19222627 (Version 1)
Quarter: 2021Q2

REPORT INFORMATION
  Report Type: Spontaneous
  Country: NZ (occurrence: NZ)
  Receive Date: 20210506
  Receipt Date: 20210506
  Transmission Date: 20210717
  Serious: Yes (Other)
  Sender: FDA-Public Use
  Company Number: NZ-STRIDES ARCOLAB LIMITED-2021SP005159

PATIENT
  Age: 75 Year
  Sex: Female

DRUGS (7)
  1. CLINDAMYCIN. [Suspect]
     Active Substance: CLINDAMYCIN
     Indication: TOXOPLASMOSIS
     Dosage: UNK
     Route: 065
  2. TRIAMCINOLONE [Concomitant]
     Active Substance: TRIAMCINOLONE
     Indication: BIRDSHOT CHORIORETINOPATHY
     Dosage: 40 MILLIGRAM, SUBTENON INJECTION
  3. MYCOPHENOLATE MOFETIL. [Concomitant]
     Active Substance: MYCOPHENOLATE MOFETIL
     Dosage: 500 MILLIGRAM
     Route: 065
  4. PREDNISOLONE. [Suspect]
     Active Substance: PREDNISOLONE
     Indication: TOXOPLASMOSIS
     Dosage: UNK
     Route: 065
  5. COTRIMOXAZOLE [Suspect]
     Active Substance: SULFAMETHOXAZOLE\TRIMETHOPRIM
     Indication: TOXOPLASMOSIS
     Dosage: UNK
     Route: 065
  6. MYCOPHENOLATE MOFETIL. [Concomitant]
     Active Substance: MYCOPHENOLATE MOFETIL
     Dosage: TAPPERED
     Route: 065
  7. MYCOPHENOLATE MOFETIL. [Concomitant]
     Active Substance: MYCOPHENOLATE MOFETIL
     Indication: BIRDSHOT CHORIORETINOPATHY
     Dosage: 1 GRAM, BID
     Route: 065

REACTIONS (2)
  - Off label use [Unknown]
  - Retinal detachment [Unknown]
